FAERS Safety Report 8267661-0 (Version None)
Quarter: 2012Q2

REPORT INFORMATION
  Report Type: 
  Country: None (occurrence: None)
  Receive Date: 20120409
  Receipt Date: 20120328
  Transmission Date: 20120825
  Serious: Yes (Other)
  Sender: FDA-Public Use
  Company Number: RS-PFIZER INC-2012086411

PATIENT
  Age: 74 Year
  Sex: Female

DRUGS (8)
  1. RAMIPRIL [Suspect]
  2. ASPIRIN [Concomitant]
     Dosage: UNK
     Dates: start: 20050101
  3. NEBIVOLOL [Concomitant]
     Dosage: UNK
     Dates: start: 20050101
  4. RAMIPRIL [Suspect]
     Dosage: UNK, 2X/DAY
     Route: 048
     Dates: start: 20100101, end: 20120319
  5. LOMETAZID [Concomitant]
     Dosage: UNK
     Dates: start: 20100101
  6. RAMIPRIL [Suspect]
     Indication: CARDIAC FAILURE
  7. RAMIPRIL [Suspect]
     Indication: ANGINA PECTORIS
     Dosage: UNK, 2X/DAY
     Route: 048
     Dates: start: 20100101, end: 20120319
  8. ISOSORBIDE MONONITRATE [Concomitant]
     Dosage: UNK
     Dates: start: 20100101

REACTIONS (2)
  - SWOLLEN TONGUE [None]
  - OEDEMA MOUTH [None]
